FAERS Safety Report 7698798-2 (Version None)
Quarter: 2011Q3

REPORT INFORMATION
  Report Type: 
  Country: None (occurrence: None)
  Receive Date: 20110819
  Receipt Date: 20110817
  Transmission Date: 20111222
  Serious: Yes (Other)
  Sender: FDA-Public Use
  Company Number: CH-GILEAD-2011-0042964

PATIENT
  Age: 27 Year
  Sex: Female

DRUGS (13)
  1. KALETRA [Suspect]
     Indication: HIV INFECTION
     Dates: start: 20100726
  2. EFAVIRENZ [Suspect]
     Indication: HIV INFECTION
     Dates: start: 20100101, end: 20100726
  3. KALETRA [Suspect]
     Dates: start: 20100830
  4. ITINEROL B6 [Suspect]
     Indication: NAUSEA
     Dates: start: 20100823
  5. PRIMPERAN TAB [Suspect]
     Indication: VOMITING
  6. MALTOFER [Concomitant]
     Dates: start: 20100901
  7. TRUVADA [Suspect]
     Dates: start: 20100830
  8. PRIMPERAN TAB [Suspect]
     Indication: NAUSEA
     Dates: start: 20100801
  9. VIRAMUNE [Suspect]
     Indication: HIV INFECTION
     Dates: start: 20100808, end: 20100812
  10. ITINEROL B6 [Suspect]
     Indication: VOMITING
  11. TRUVADA [Suspect]
     Indication: HIV INFECTION
     Dates: start: 20100101, end: 20100812
  12. BACTRIM [Suspect]
     Dates: start: 20100101
  13. ATOVAQUONE [Suspect]
     Dates: start: 20100101

REACTIONS (1)
  - MATERNAL EXPOSURE DURING PREGNANCY [None]
